FAERS Safety Report 23719397 (Version 1)
Quarter: 2024Q2

REPORT INFORMATION
  Report Type: Spontaneous
  Country: RU (occurrence: RU)
  Receive Date: 20240408
  Receipt Date: 20240408
  Transmission Date: 20240716
  Serious: Yes (Other)
  Sender: FDA-Public Use
  Company Number: RU-BIOGEN-2024BI01258377

PATIENT
  Age: 34 Year
  Sex: Male

DRUGS (1)
  1. PLEGRIDY [Suspect]
     Active Substance: PEGINTERFERON BETA-1A
     Indication: Product used for unknown indication
     Route: 050

REACTIONS (5)
  - Dizziness [Unknown]
  - Asthenia [Unknown]
  - Injection site haematoma [Unknown]
  - Myalgia [Unknown]
  - Body temperature increased [Unknown]
